FAERS Safety Report 10775099 (Version 1)
Quarter: 2015Q1

REPORT INFORMATION
  Report Type: Report from Study
  Country: US (occurrence: None)
  Receive Date: 20150205
  Receipt Date: 20150205
  Transmission Date: 20150721
  Serious: Yes (Hospitalization, Other)
  Sender: FDA-Public Use
  Company Number: AEGR001146

PATIENT
  Age: 57 Year
  Sex: Male
  Weight: 80.3 kg

DRUGS (1)
  1. JUXTAPID [Suspect]
     Active Substance: LOMITAPIDE MESYLATE
     Indication: TYPE IIA HYPERLIPIDAEMIA
     Route: 048
     Dates: start: 201303

REACTIONS (2)
  - Gastrointestinal disorder postoperative [None]
  - Gastric bypass [None]

NARRATIVE: CASE EVENT DATE: 201501
